FAERS Safety Report 17932646 (Version 2)
Quarter: 2020Q3

REPORT INFORMATION
  Report Type: Report from Study
  Country: GB (occurrence: GB)
  Receive Date: 20200623
  Receipt Date: 20200714
  Transmission Date: 20201103
  Serious: Yes (Death, Hospitalization)
  Sender: FDA-Public Use
  Company Number: GB-JNJFOC-20200625882

PATIENT
  Age: 36 Year
  Sex: Male
  Weight: 87.1 kg

DRUGS (20)
  1. SENNA                              /00142201/ [Concomitant]
     Active Substance: SENNA LEAF
     Dates: start: 20180329, end: 20190225
  2. IBUPROFEN. [Concomitant]
     Active Substance: IBUPROFEN
     Dates: start: 20190220, end: 20190224
  3. ONDANSETRON [Concomitant]
     Active Substance: ONDANSETRON
     Dates: start: 20181223
  4. CEFUROXIME. [Concomitant]
     Active Substance: CEFUROXIME
     Dates: start: 20190220, end: 20190225
  5. LAXIDO [Concomitant]
     Active Substance: POLYETHYLENE GLYCOL 3350\POTASSIUM CHLORIDE\SODIUM BICARBONATE\SODIUM CHLORIDE
     Dates: start: 20190225, end: 20190302
  6. OMEPRAZOLE. [Concomitant]
     Active Substance: OMEPRAZOLE
     Dates: start: 20190222
  7. DEXAMETHASONE. [Concomitant]
     Active Substance: DEXAMETHASONE
     Dates: start: 20190328
  8. COTRIMOXAZOLE [Concomitant]
     Active Substance: SULFAMETHOXAZOLE\TRIMETHOPRIM
     Dates: start: 20180329
  9. PARACETAMOL [Concomitant]
     Active Substance: ACETAMINOPHEN
     Dates: start: 20180425
  10. STELARA [Suspect]
     Active Substance: USTEKINUMAB
     Indication: PSORIASIS
     Route: 058
     Dates: start: 20170511, end: 20171123
  11. METOCLOPRAMIDE                     /00041902/ [Concomitant]
     Active Substance: METOCLOPRAMIDE HYDROCHLORIDE
     Dates: start: 20181029
  12. CYCLIZINE [Concomitant]
     Active Substance: CYCLIZINE
     Dates: start: 20181130, end: 20190220
  13. ENOXAPARIN SODIUM. [Concomitant]
     Active Substance: ENOXAPARIN SODIUM
     Dates: start: 20190220, end: 20190304
  14. TRAMADOL. [Concomitant]
     Active Substance: TRAMADOL
     Dates: start: 20190304
  15. DEXAMETHASONE. [Concomitant]
     Active Substance: DEXAMETHASONE
     Dates: start: 20190328
  16. OXYCODONE [Concomitant]
     Active Substance: OXYCODONE
     Dates: start: 20190214, end: 20190303
  17. MORPHINE [Concomitant]
     Active Substance: MORPHINE
     Dates: start: 20190220
  18. DIHYDROCODEINE [Concomitant]
     Active Substance: DIHYDROCODEINE
     Dates: start: 20190228, end: 20190304
  19. LACTULOSE. [Concomitant]
     Active Substance: LACTULOSE
     Dates: start: 20190228, end: 20190409
  20. SANDOCAL                           /00751528/ [Concomitant]
     Dates: start: 20190325

REACTIONS (2)
  - Ewing^s sarcoma [Fatal]
  - Urinary tract infection [Unknown]

NARRATIVE: CASE EVENT DATE: 20190409
